FAERS Safety Report 24031089 (Version 2)
Quarter: 2024Q4

REPORT INFORMATION
  Report Type: Spontaneous
  Country: JP (occurrence: JP)
  Receive Date: 20240628
  Receipt Date: 20241112
  Transmission Date: 20250114
  Serious: Yes (Hospitalization, Other)
  Sender: MERCK
  Company Number: JP-MSD-2406JPN003746JAA

PATIENT
  Age: 68 Year
  Sex: Female

DRUGS (4)
  1. KEYTRUDA [Suspect]
     Active Substance: PEMBROLIZUMAB
     Indication: Uterine cancer
     Dosage: UNK
     Route: 041
     Dates: end: 202405
  2. LENVATINIB MESYLATE [Suspect]
     Active Substance: LENVATINIB MESYLATE
     Indication: Uterine cancer
     Dosage: 10 MILLIGRAM
     Route: 048
  3. LENVATINIB MESYLATE [Suspect]
     Active Substance: LENVATINIB MESYLATE
     Dosage: UNK, UNK, DOSE TO BE INCREASED OR DECREASED AS NEEDED
     Route: 048
  4. LENVATINIB MESYLATE [Suspect]
     Active Substance: LENVATINIB MESYLATE
     Dosage: 10 MILLIGRAM
     Route: 048
     Dates: end: 202405

REACTIONS (2)
  - Ileus [Unknown]
  - Proteinuria [Recovering/Resolving]

NARRATIVE: CASE EVENT DATE: 20240419
